FAERS Safety Report 8681369 (Version 13)
Quarter: 2014Q1

REPORT INFORMATION
  Report Type: Spontaneous
  Country: US (occurrence: US)
  Receive Date: 20120725
  Receipt Date: 20140128
  Transmission Date: 20141002
  Serious: No
  Sender: FDA-Public Use
  Company Number: US-PFIZER INC-2012174868

PATIENT
  Age: 68 Year
  Sex: Male

DRUGS (6)
  1. INLYTA [Suspect]
     Indication: RENAL CELL CARCINOMA
     Dosage: 10 MG, 2X/DAY
     Dates: start: 20120309
  2. INLYTA [Suspect]
     Dosage: 10 MG, 2X/DAY
     Dates: start: 201204
  3. INLYTA [Suspect]
     Dosage: 10 MG, 2X/DAY
  4. INLYTA [Suspect]
     Dosage: 5 MG, 2X/DAY
     Dates: start: 201204
  5. INLYTA [Suspect]
     Dosage: 7 MG, 2X/DAY (#1 5MG PILL AND #2 1MG PILLS PER DOSE)
     Dates: start: 20130625
  6. INLYTA [Suspect]
     Dosage: 7 MG, 2X/DAY (#1 5MG PILL AND #2 1MG PILLS PER DOSE
     Dates: start: 20130625

REACTIONS (14)
  - Fatigue [Unknown]
  - Diarrhoea [Unknown]
  - Increased tendency to bruise [Unknown]
  - Thyroid disorder [Unknown]
  - Pharyngeal disorder [Unknown]
  - Dyspnoea [Unknown]
  - Hypertension [Recovering/Resolving]
  - Dysphonia [Unknown]
  - Snoring [Unknown]
  - Decreased appetite [Unknown]
  - Weight decreased [Unknown]
  - Dyspnoea [Unknown]
  - Asthenia [Unknown]
  - Speech disorder [Unknown]
